FAERS Safety Report 24602804 (Version 3)
Quarter: 2024Q4

REPORT INFORMATION
  Report Type: Spontaneous
  Country: US (occurrence: US)
  Receive Date: 20241111
  Receipt Date: 20241226
  Transmission Date: 20250115
  Serious: Yes (Hospitalization)
  Sender: GRIFOLS
  Company Number: US-IGSA-BIG0031461

PATIENT
  Age: 64 Year
  Sex: Male

DRUGS (8)
  1. GAMUNEX-C [Suspect]
     Active Substance: HUMAN IMMUNOGLOBULIN G
     Indication: Polymyositis
     Dosage: 216 GRAM, Q.4WK.
     Route: 042
     Dates: start: 2017
  2. GAMUNEX-C [Suspect]
     Active Substance: HUMAN IMMUNOGLOBULIN G
     Indication: Off label use
     Dosage: UNK UNK, UNKNOWN
  3. GAMUNEX-C [Suspect]
     Active Substance: HUMAN IMMUNOGLOBULIN G
     Dosage: UNK UNK, UNKNOWN
  4. GAMUNEX-C [Suspect]
     Active Substance: HUMAN IMMUNOGLOBULIN G
     Dosage: UNK UNK, UNKNOWN
  5. GAMUNEX-C [Suspect]
     Active Substance: HUMAN IMMUNOGLOBULIN G
     Dosage: UNK UNK, UNKNOWN
  6. GAMUNEX-C [Suspect]
     Active Substance: HUMAN IMMUNOGLOBULIN G
     Dosage: UNK UNK, UNKNOWN
  7. GAMUNEX-C [Suspect]
     Active Substance: HUMAN IMMUNOGLOBULIN G
     Dosage: UNK UNK, UNKNOWN
     Route: 065
  8. GAMUNEX-C [Suspect]
     Active Substance: HUMAN IMMUNOGLOBULIN G
     Dosage: 216 GRAM, Q.M.T.
     Route: 065

REACTIONS (4)
  - Diverticulitis [Not Recovered/Not Resolved]
  - Small intestinal obstruction [Unknown]
  - Rectal haemorrhage [Not Recovered/Not Resolved]
  - Intentional dose omission [Not Recovered/Not Resolved]

NARRATIVE: CASE EVENT DATE: 20241016
